FAERS Safety Report 10005923 (Version 2)
Quarter: 2014Q1

REPORT INFORMATION
  Report Type: Spontaneous
  Country: US (occurrence: US)
  Receive Date: 20140313
  Receipt Date: 20140313
  Transmission Date: 20141002
  Serious: Yes (Other)
  Sender: FDA-Public Use
  Company Number: US-ELI_LILLY_AND_COMPANY-US201401000161

PATIENT
  Age: 76 Year
  Sex: Male
  Weight: 91.61 kg

DRUGS (30)
  1. HUMALOG LISPRO [Suspect]
     Indication: DIABETES MELLITUS
     Dosage: UNK UNK, PRN
     Route: 058
  2. ACETAMINOPHEN W/HYDROCODONE [Concomitant]
     Indication: PAIN
     Dosage: UNK, PRN
     Route: 048
  3. METFORMIN [Concomitant]
     Dosage: 1000 MG, BID
     Route: 048
  4. LANTUS [Concomitant]
     Dosage: 50 U, EACH MORNING
     Route: 058
  5. LANTUS [Concomitant]
     Dosage: 38 U, EACH EVENING
     Route: 058
  6. GLIMEPIRIDE [Concomitant]
     Dosage: 2 MG, EACH MORNING
     Route: 048
  7. ADVAIR [Concomitant]
     Dosage: UNK, BID
     Route: 055
  8. ALFUZOSIN [Concomitant]
     Dosage: 10 MG, QD
     Route: 048
  9. ASPIRIN [Concomitant]
     Dosage: 81 MG, QD
     Route: 048
  10. ROFLUMILAST [Concomitant]
     Dosage: 500 UG, QD
     Route: 048
  11. DUONEB [Concomitant]
     Dosage: UNK, PRN
     Route: 055
  12. FINASTERIDE [Concomitant]
     Dosage: 5 MG, QD
     Route: 048
  13. FISH OIL [Concomitant]
     Dosage: 500 MG, TID
     Route: 048
  14. FLORASTOR [Concomitant]
     Dosage: 250 MG, BID
     Route: 048
  15. FUROSEMIDE [Concomitant]
     Dosage: 40 MG, EACH MORNING
     Route: 048
  16. HYDROXYZINE HYDROCHLORIDE [Concomitant]
     Dosage: 25 MG, TID
     Route: 048
  17. HYZAAR [Concomitant]
     Dosage: UNK, QD
     Route: 048
  18. LAC-HYDRIN [Concomitant]
     Dosage: UNK, TID
     Route: 061
  19. LEVOTHYROXINE [Concomitant]
     Dosage: 50 UG, QD
     Route: 048
  20. LOPERAMIDE [Concomitant]
     Indication: DIARRHOEA
     Dosage: 2 MG, QID
     Route: 048
  21. MAGNESIUM OXIDE [Concomitant]
     Dosage: 420 MG, TID
     Route: 048
  22. MAGONATE [Concomitant]
     Dosage: 1 DF, TID
  23. NAPROSYN                           /00256201/ [Concomitant]
     Dosage: 375 MG, BID
     Route: 048
  24. NIACIN [Concomitant]
     Dosage: 500 MG, BID
     Route: 048
  25. PROSCAR [Concomitant]
     Dosage: 5 MG, QD
     Route: 048
  26. SYNTHROID [Concomitant]
     Dosage: 50 UG, UNK
     Route: 048
  27. TERAZOSIN [Concomitant]
     Dosage: 1 MG, EACH EVENING
  28. TOLTERODINE [Concomitant]
     Dosage: 2 MG, QD
     Route: 048
  29. UROXATRAL [Concomitant]
     Dosage: 10 MG, UNK
     Route: 048
  30. VIAGRA [Concomitant]
     Dosage: 100 MG, UNK
     Route: 048

REACTIONS (2)
  - Atypical pneumonia [Recovered/Resolved]
  - Hypoacusis [Not Recovered/Not Resolved]
